FAERS Safety Report 25530416 (Version 1)
Quarter: 2025Q3

REPORT INFORMATION
  Report Type: Spontaneous
  Country: EU (occurrence: EU)
  Receive Date: 20250708
  Receipt Date: 20250708
  Transmission Date: 20251020
  Serious: Yes (Death)
  Sender: MERCK SHARP & DOHME LLC
  Company Number: None

PATIENT
  Age: 67 Year
  Sex: Female

DRUGS (16)
  1. KEYTRUDA [Interacting]
     Active Substance: PEMBROLIZUMAB
     Indication: Peritoneal neoplasm
     Dates: start: 20250417, end: 20250417
  2. Lyrica hard capsules 75mg [Concomitant]
     Dosage: 1-0-2-0
  3. Rosuvastatin + Pharm Ftbl 20mg [Concomitant]
     Dosage: 0-0-1-0
  4. Tresiba 100U/ml FPen 3ml [Concomitant]
     Dosage: 20IE-0-0-0
  5. Pantoloc Ftbl 40mg [Concomitant]
     Dosage: 1-0-0-0
  6. Synjardy Ftbl 12.5/1000mg [Concomitant]
     Dosage: 1-0-0-1
  7. PIPERACILLIN SODIUM\TAZOBACTAM SODIUM [Interacting]
     Active Substance: PIPERACILLIN SODIUM\TAZOBACTAM SODIUM
     Dates: start: 20250305, end: 20250314
  8. PIPERACILLIN SODIUM\TAZOBACTAM SODIUM [Interacting]
     Active Substance: PIPERACILLIN SODIUM\TAZOBACTAM SODIUM
     Dates: start: 20250504, end: 20250519
  9. Xarelto Ftbl 20mg [Concomitant]
     Dosage: 1-0-0-0
  10. Novalgin Tr 50mg [Concomitant]
     Dosage: 40-40-40-0 GTT
  11. CARBOPLATIN [Interacting]
     Active Substance: CARBOPLATIN
     Dates: start: 20250201, end: 20250201
  12. CARBOPLATIN [Interacting]
     Active Substance: CARBOPLATIN
     Dates: start: 2025, end: 2025
  13. CARBOPLATIN [Interacting]
     Active Substance: CARBOPLATIN
     Dates: start: 20250417, end: 20250417
  14. Novorapid 100U/ml Penf. 3ml [Concomitant]
  15. Euthyrox Tablets 100mcg [Concomitant]
     Dosage: 1-0-0-0
  16. Sertraline 1A Ftbl 50mg [Concomitant]
     Dosage: 1-0-0-0

REACTIONS (4)
  - Immune-mediated hepatitis [Fatal]
  - Drug-induced liver injury [Fatal]
  - Immune-mediated thyroiditis [Fatal]
  - Cholestatic liver injury [Fatal]

NARRATIVE: CASE EVENT DATE: 20250426
